FAERS Safety Report 25616151 (Version 1)
Quarter: 2025Q3

REPORT INFORMATION
  Report Type: Spontaneous
  Country: CA (occurrence: CA)
  Receive Date: 20250729
  Receipt Date: 20250729
  Transmission Date: 20251021
  Serious: Yes (Death, Life-Threatening, Hospitalization, Disabling, Congenital Anomaly, Other)
  Sender: Haleon PLC
  Company Number: CA-HALEON-2254273

PATIENT
  Age: 43 Year
  Sex: Female

DRUGS (278)
  1. FLONASE ALLERGY RELIEF [Suspect]
     Active Substance: FLUTICASONE PROPIONATE
     Indication: Product used for unknown indication
     Dosage: PATIENT ROA: UNKNOWN
  2. TUMS ULTRA [Suspect]
     Active Substance: CALCIUM CARBONATE
     Indication: Product used for unknown indication
  3. TUMS ULTRA [Suspect]
     Active Substance: CALCIUM CARBONATE
     Indication: Migraine
  4. AZELAIC ACID [Suspect]
     Active Substance: AZELAIC ACID
     Indication: Product used for unknown indication
  5. AZELAIC ACID [Suspect]
     Active Substance: AZELAIC ACID
     Dosage: PATIENT ROA: UNKNOWN
  6. BERINERT [Suspect]
     Active Substance: HUMAN C1-ESTERASE INHIBITOR
     Indication: Product used for unknown indication
  7. BETAMETHASONE [Suspect]
     Active Substance: BETAMETHASONE
     Indication: Product used for unknown indication
  8. BETAMETHASONE [Suspect]
     Active Substance: BETAMETHASONE
     Dosage: DOSE FORM: OINTMENT AND PATIENT ROA: UNKNOWN
  9. CALCIUM ASCORBATE [Suspect]
     Active Substance: CALCIUM ASCORBATE
     Indication: Product used for unknown indication
  10. CALTRATE [Suspect]
     Active Substance: CALCIUM CARBONATE
     Indication: Product used for unknown indication
  11. ACETAMINOPHEN [Suspect]
     Active Substance: ACETAMINOPHEN
     Indication: Product used for unknown indication
  12. ACETAMINOPHEN AND CODEINE [Suspect]
     Active Substance: ACETAMINOPHEN\CODEINE PHOSPHATE
     Indication: Product used for unknown indication
  13. ACTEMRA [Suspect]
     Active Substance: TOCILIZUMAB
     Indication: Rheumatoid arthritis
  14. ACTEMRA [Suspect]
     Active Substance: TOCILIZUMAB
  15. ACTEMRA [Suspect]
     Active Substance: TOCILIZUMAB
  16. ACTEMRA [Suspect]
     Active Substance: TOCILIZUMAB
  17. AIMOVIG [Suspect]
     Active Substance: ERENUMAB-AOOE
     Indication: Migraine
  18. AIMOVIG [Suspect]
     Active Substance: ERENUMAB-AOOE
     Dosage: DOSE FORM: SOLUTION AND PATIENT ROA: UNKNOWN
  19. ATOMOXETINE HYDROCHLORIDE [Suspect]
     Active Substance: ATOMOXETINE HYDROCHLORIDE
     Indication: Migraine
     Dosage: PATIENT ROA: UNKNOWN
  20. ATOMOXETINE HYDROCHLORIDE [Suspect]
     Active Substance: ATOMOXETINE HYDROCHLORIDE
     Indication: Migraine
  21. ATOMOXETINE HYDROCHLORIDE [Suspect]
     Active Substance: ATOMOXETINE HYDROCHLORIDE
  22. ATOMOXETINE HYDROCHLORIDE [Suspect]
     Active Substance: ATOMOXETINE HYDROCHLORIDE
     Dosage: DOSE FORM: CAPSULE, HARD AND PATIENT ROA: UNKNOWN
  23. ATOMOXETINE HYDROCHLORIDE [Suspect]
     Active Substance: ATOMOXETINE HYDROCHLORIDE
     Dosage: DOSE FORM: CAPSULE, HARD AND PATIENT ROA: ENDOCERVICAL
  24. ATOMOXETINE HYDROCHLORIDE [Suspect]
     Active Substance: ATOMOXETINE HYDROCHLORIDE
  25. ATOMOXETINE HYDROCHLORIDE [Suspect]
     Active Substance: ATOMOXETINE HYDROCHLORIDE
  26. FLUTICASONE FUROATE [Suspect]
     Active Substance: FLUTICASONE FUROATE
     Indication: Product used for unknown indication
     Dosage: DOSE FORM: SPRAY, METERED DOSE AND PATIENT ROA: UNKNOWN
  27. FLUTICASONE FUROATE [Suspect]
     Active Substance: FLUTICASONE FUROATE
     Dosage: DOSE FORM: NASAL SPRAY AND PATIENT ROA: UNKNOWN
  28. FLUTICASONE FUROATE [Suspect]
     Active Substance: FLUTICASONE FUROATE
  29. BETAMETHASONE [Suspect]
     Active Substance: BETAMETHASONE
     Indication: Product used for unknown indication
  30. BETAMETHASONE VALERATE [Suspect]
     Active Substance: BETAMETHASONE VALERATE
     Indication: Product used for unknown indication
  31. BETAMETHASONE VALERATE [Suspect]
     Active Substance: BETAMETHASONE VALERATE
  32. BETAMETHASONE VALERATE [Suspect]
     Active Substance: BETAMETHASONE VALERATE
  33. BETAMETHASONE VALERATE [Suspect]
     Active Substance: BETAMETHASONE VALERATE
     Dosage: DOSE FORM: OINTMENT AND PATIENT ROA: UNKNOWN
  34. BOTOX [Suspect]
     Active Substance: ONABOTULINUMTOXINA
     Indication: Migraine
  35. BOTULINUM TOXIN TYPE A [Suspect]
     Active Substance: BOTULINUM TOXIN TYPE A
     Indication: Migraine
     Dosage: DOSE FORM: POWDER FOR SOLUTION FOR INJECTION AND PATIENT ROA: UNKNOWN
  36. BOTULINUM TOXIN TYPE A [Suspect]
     Active Substance: BOTULINUM TOXIN TYPE A
  37. BOTULINUM TOXIN TYPE A [Suspect]
     Active Substance: BOTULINUM TOXIN TYPE A
     Indication: Migraine
  38. BUPRENORPHINE HYDROCHLORIDE [Suspect]
     Active Substance: BUPRENORPHINE HYDROCHLORIDE
     Indication: Product used for unknown indication
  39. BUTRANS [Suspect]
     Active Substance: BUPRENORPHINE
     Indication: Product used for unknown indication
  40. CALCIUM PANTOTHENATE [Suspect]
     Active Substance: CALCIUM PANTOTHENATE
     Indication: Product used for unknown indication
  41. CALCIUM GLUCONATE [Suspect]
     Active Substance: CALCIUM GLUCONATE
     Indication: Product used for unknown indication
  42. CALCIUM PANTOTHENATE [Suspect]
     Active Substance: CALCIUM PANTOTHENATE
     Indication: Product used for unknown indication
  43. CANDESARTAN [Suspect]
     Active Substance: CANDESARTAN
     Indication: Migraine
     Route: 048
  44. CANDESARTAN [Suspect]
     Active Substance: CANDESARTAN
     Route: 048
  45. CANDESARTAN [Suspect]
     Active Substance: CANDESARTAN
  46. CELECOXIB [Suspect]
     Active Substance: CELECOXIB
     Indication: Product used for unknown indication
     Dosage: DOSE FORM: TABLET AND PATIENT ROA: UNKNOWN
  47. CELECOXIB [Suspect]
     Active Substance: CELECOXIB
     Dosage: DOSE FORM: TABLET AND PATIENT ROA: UNKNOWN
  48. CETIRIZINE [Suspect]
     Active Substance: CETIRIZINE HYDROCHLORIDE
     Indication: Product used for unknown indication
     Route: 048
  49. CETIRIZINE [Suspect]
     Active Substance: CETIRIZINE HYDROCHLORIDE
     Route: 048
  50. CETIRIZINE [Suspect]
     Active Substance: CETIRIZINE HYDROCHLORIDE
     Dosage: DOSE FORM: TABLET AND PATIENT ROA: ORAL
     Route: 048
  51. CETIRIZINE [Suspect]
     Active Substance: CETIRIZINE HYDROCHLORIDE
     Dosage: DOSE FORM: TABLET AND PATIENT ROA: UNKNOWN
  52. CETIRIZINE [Suspect]
     Active Substance: CETIRIZINE HYDROCHLORIDE
     Route: 048
  53. CETIRIZINE [Suspect]
     Active Substance: CETIRIZINE HYDROCHLORIDE
     Route: 048
  54. CETIRIZINE [Suspect]
     Active Substance: CETIRIZINE HYDROCHLORIDE
     Dosage: DOSE FORM: TABLET AND PATIENT ROA: UNKNOWN
  55. CETIRIZINE HYDROCHLORIDE [Suspect]
     Active Substance: CETIRIZINE HYDROCHLORIDE
     Indication: Product used for unknown indication
     Dosage: DOSE FORM: TABLET AND PATIENT ROA: UNKNOWN
  56. CETIRIZINE HYDROCHLORIDE [Suspect]
     Active Substance: CETIRIZINE HYDROCHLORIDE
  57. CETIRIZINE HYDROCHLORIDE [Suspect]
     Active Substance: CETIRIZINE HYDROCHLORIDE
     Dosage: DOSE FORM: TABLET AND PATIENT ROA: UNKNOWN
  58. CETIRIZINE HYDROCHLORIDE [Suspect]
     Active Substance: CETIRIZINE HYDROCHLORIDE
  59. CETIRIZINE HYDROCHLORIDE [Suspect]
     Active Substance: CETIRIZINE HYDROCHLORIDE
     Route: 048
  60. TRICHOLINE CITRATE [Suspect]
     Active Substance: TRICHOLINE CITRATE
     Indication: Product used for unknown indication
  61. CORTISONE ACETATE [Suspect]
     Active Substance: CORTISONE ACETATE
     Indication: Product used for unknown indication
  62. COSENTYX [Suspect]
     Active Substance: SECUKINUMAB
     Indication: Product used for unknown indication
  63. CYCLOBENZAPRINE [Suspect]
     Active Substance: CYCLOBENZAPRINE
     Indication: Product used for unknown indication
  64. CYCLOBENZAPRINE [Suspect]
     Active Substance: CYCLOBENZAPRINE
     Dosage: DOSE FORM: TABLET AND PATIENT ROA: UNKNOWN
  65. CYCLOBENZAPRINE HYDROCHLORIDE [Suspect]
     Active Substance: CYCLOBENZAPRINE HYDROCHLORIDE
     Indication: Product used for unknown indication
     Dosage: DOSE FORM: TABLET AND PATIENT ROA: UNKNOWN
  66. CYCLOBENZAPRINE HYDROCHLORIDE [Suspect]
     Active Substance: CYCLOBENZAPRINE HYDROCHLORIDE
  67. DESOXIMETASONE [Suspect]
     Active Substance: DESOXIMETASONE
     Indication: Product used for unknown indication
  68. DESOXIMETASONE [Suspect]
     Active Substance: DESOXIMETASONE
     Dosage: PATIENT ROA: UNKNOWN
  69. DESOXIMETASONE [Suspect]
     Active Substance: DESOXIMETASONE
  70. DESOXIMETASONE [Suspect]
     Active Substance: DESOXIMETASONE
     Dosage: PATIENT ROA: UNKNOWN
  71. DESOXIMETASONE [Suspect]
     Active Substance: DESOXIMETASONE
     Dosage: PATIENT ROA: UNKNOWN
  72. DESOXIMETASONE [Suspect]
     Active Substance: DESOXIMETASONE
  73. DESOXIMETASONE [Suspect]
     Active Substance: DESOXIMETASONE
     Dosage: PATIENT ROA: UNKNOWN
  74. DESOXIMETASONE [Suspect]
     Active Substance: DESOXIMETASONE
  75. DESOXIMETASONE [Suspect]
     Active Substance: DESOXIMETASONE
     Dosage: PATIENT ROA: UNKNOWN
  76. DESOXIMETASONE [Suspect]
     Active Substance: DESOXIMETASONE
     Dosage: PATIENT ROA: UNKNOWN
  77. DESOXIMETASONE [Suspect]
     Active Substance: DESOXIMETASONE
     Dosage: PATIENT ROA: UNKNOWN
  78. DESOXIMETASONE [Suspect]
     Active Substance: DESOXIMETASONE
     Dosage: PATIENT ROA: UNKNOWN
  79. DESOXIMETASONE [Suspect]
     Active Substance: DESOXIMETASONE
     Dosage: PATIENT ROA: UNKNOWN
  80. DESOXIMETASONE [Suspect]
     Active Substance: DESOXIMETASONE
     Dosage: PATIENT ROA: UNKNOWN
  81. DESOXIMETASONE [Suspect]
     Active Substance: DESOXIMETASONE
  82. DESOXIMETASONE [Suspect]
     Active Substance: DESOXIMETASONE
     Dosage: PATIENT ROA: UNKNOWN
  83. DESOXIMETASONE [Suspect]
     Active Substance: DESOXIMETASONE
  84. DESOXIMETASONE [Suspect]
     Active Substance: DESOXIMETASONE
     Dosage: PATIENT ROA: UNKNOWN
  85. DESOXIMETASONE [Suspect]
     Active Substance: DESOXIMETASONE
  86. DESOXIMETASONE [Suspect]
     Active Substance: DESOXIMETASONE
  87. DESOXIMETASONE [Suspect]
     Active Substance: DESOXIMETASONE
     Dosage: PATIENT ROA: UNKNOWN
  88. DOMPERIDONE [Suspect]
     Active Substance: DOMPERIDONE
     Indication: Product used for unknown indication
  89. DOMPERIDONE [Suspect]
     Active Substance: DOMPERIDONE
  90. DOMPERIDONE [Suspect]
     Active Substance: DOMPERIDONE
     Indication: Product used for unknown indication
  91. DOMPERIDONE MALEATE [Suspect]
     Active Substance: DOMPERIDONE MALEATE
     Indication: Product used for unknown indication
     Dosage: DOSE FORM AND PATIENT ROA: UNKNOWN
  92. DOMPERIDONE MALEATE [Suspect]
     Active Substance: DOMPERIDONE MALEATE
  93. DOMPERIDONE MALEATE [Suspect]
     Active Substance: DOMPERIDONE MALEATE
  94. DOMPERIDONE MALEATE [Suspect]
     Active Substance: DOMPERIDONE MALEATE
     Dosage: DOSE FORM AND PATIENT ROA: UNKNOWN
  95. DOMPERIDONE MALEATE [Suspect]
     Active Substance: DOMPERIDONE MALEATE
     Dosage: DOSE FORM AND PATIENT ROA: UNKNOWN
  96. DOMPERIDONE MALEATE [Suspect]
     Active Substance: DOMPERIDONE MALEATE
  97. DOMPERIDONE MALEATE [Suspect]
     Active Substance: DOMPERIDONE MALEATE
     Dosage: DOSE FORM AND PATIENT ROA: UNKNOWN
  98. DOMPERIDONE\PANTOPRAZOLE SODIUM [Suspect]
     Active Substance: DOMPERIDONE\PANTOPRAZOLE SODIUM
     Indication: Product used for unknown indication
  99. DOMPERIDONE\PANTOPRAZOLE SODIUM [Suspect]
     Active Substance: DOMPERIDONE\PANTOPRAZOLE SODIUM
  100. ERELZI [Suspect]
     Active Substance: ETANERCEPT-SZZS
     Indication: Product used for unknown indication
  101. ERENUMAB [Suspect]
     Active Substance: ERENUMAB
     Indication: Migraine
     Dosage: PATIENT ROA: UNKNOWN
  102. ERENUMAB [Suspect]
     Active Substance: ERENUMAB
  103. ERENUMAB [Suspect]
     Active Substance: ERENUMAB
  104. ERENUMAB [Suspect]
     Active Substance: ERENUMAB
  105. ERENUMAB [Suspect]
     Active Substance: ERENUMAB
  106. ERENUMAB-AOOE [Suspect]
     Active Substance: ERENUMAB-AOOE
     Indication: Migraine
  107. ERGOCALCIFEROL [Suspect]
     Active Substance: ERGOCALCIFEROL
     Indication: Product used for unknown indication
  108. ERGOCALCIFEROL [Suspect]
     Active Substance: ERGOCALCIFEROL
  109. FETZIMA [Suspect]
     Active Substance: LEVOMILNACIPRAN HYDROCHLORIDE
     Indication: Product used for unknown indication
  110. FETZIMA [Suspect]
     Active Substance: LEVOMILNACIPRAN HYDROCHLORIDE
     Dosage: PATIENT ROA: UNKNOWN
  111. FINACEA [Suspect]
     Active Substance: AZELAIC ACID
     Indication: Product used for unknown indication
     Dosage: DOSE FORM: GEL AND PATIENT ROA: ORAL
  112. FINACEA [Suspect]
     Active Substance: AZELAIC ACID
  113. FINACEA [Suspect]
     Active Substance: AZELAIC ACID
     Dosage: DOSE FORM: GEL AND PATIENT ROA: UNKNOWN
  114. FLUMETHASONE PIVALATE [Suspect]
     Active Substance: FLUMETHASONE PIVALATE
     Indication: Product used for unknown indication
  115. FLUTICASONE FUROATE [Suspect]
     Active Substance: FLUTICASONE FUROATE
     Indication: Product used for unknown indication
     Dosage: PATIENT ROA: UNKNOWN
  116. FOLIC ACID [Suspect]
     Active Substance: FOLIC ACID
     Indication: Product used for unknown indication
  117. FOSAMAX [Suspect]
     Active Substance: ALENDRONATE SODIUM
     Indication: Product used for unknown indication
  118. GOLD SODIUM THIOMALATE [Suspect]
     Active Substance: GOLD SODIUM THIOMALATE
     Indication: Product used for unknown indication
  119. HYDROCORTISONE ACETATE [Suspect]
     Active Substance: HYDROCORTISONE ACETATE
     Indication: Product used for unknown indication
     Dosage: PATIENT ROA: UNKNOWN
  120. HYDROCORTISONE ACETATE [Suspect]
     Active Substance: HYDROCORTISONE ACETATE
     Dosage: PATIENT ROA: UNKNOWN
  121. HYDROCORTISONE ACETATE [Suspect]
     Active Substance: HYDROCORTISONE ACETATE
     Dosage: PATIENT ROA: UNKNOWN
  122. HYDROCORTISONE ACETATE [Suspect]
     Active Substance: HYDROCORTISONE ACETATE
  123. HYDROCORTISONE ACETATE [Suspect]
     Active Substance: HYDROCORTISONE ACETATE
     Dosage: PATIENT ROA: UNKNOWN
  124. HYDROCORTISONE ACETATE [Suspect]
     Active Substance: HYDROCORTISONE ACETATE
  125. HYDROCORTISONE ACETATE [Suspect]
     Active Substance: HYDROCORTISONE ACETATE
  126. HYDROCORTISONE ACETATE [Suspect]
     Active Substance: HYDROCORTISONE ACETATE
     Dosage: PATIENT ROA: UNKNOWN
  127. HYDROMORPHONE [Suspect]
     Active Substance: HYDROMORPHONE
     Indication: Product used for unknown indication
     Dosage: DOSE FORM AND PATIENT ROA: UNKNOWN
  128. HYDROMORPHONE [Suspect]
     Active Substance: HYDROMORPHONE
  129. HYDROMORPHONE [Suspect]
     Active Substance: HYDROMORPHONE
     Dosage: PATIENT ROA: UNKNOWN
  130. HYDROMORPHONE [Suspect]
     Active Substance: HYDROMORPHONE
  131. HYDROMORPHONE [Suspect]
     Active Substance: HYDROMORPHONE
     Dosage: DOSE FORM AND PATIENT ROA: UNKNOWN
  132. HYDROMORPHONE HYDROCHLORIDE [Suspect]
     Active Substance: HYDROMORPHONE HYDROCHLORIDE
     Indication: Product used for unknown indication
     Dosage: PATIENT ROA: UNKNOWN
  133. HYDROMORPHONE HYDROCHLORIDE [Suspect]
     Active Substance: HYDROMORPHONE HYDROCHLORIDE
     Dosage: PATIENT ROA: UNKNOWN
  134. HYRIMOZ [Suspect]
     Active Substance: ADALIMUMAB-ADAZ
     Indication: Product used for unknown indication
  135. INFLIXIMAB [Suspect]
     Active Substance: INFLIXIMAB
     Indication: Product used for unknown indication
  136. LAMICTAL [Suspect]
     Active Substance: LAMOTRIGINE
     Indication: Product used for unknown indication
     Dosage: DOSE FORM: TABLET AND PATIENT ROA: ORAL
     Route: 048
  137. LAMICTAL [Suspect]
     Active Substance: LAMOTRIGINE
     Dosage: DOSE FORM: TABLET AND PATIENT ROA: ORAL
     Route: 048
  138. LAMICTAL [Suspect]
     Active Substance: LAMOTRIGINE
     Dosage: DOSE FORM: TABLET AND PATIENT ROA: ORAL
     Route: 048
  139. LAMICTAL [Suspect]
     Active Substance: LAMOTRIGINE
     Dosage: DOSE FORM: TABLET AND PATIENT ROA: ORAL
     Route: 048
  140. LAMICTAL [Suspect]
     Active Substance: LAMOTRIGINE
     Route: 048
  141. LAMICTAL [Suspect]
     Active Substance: LAMOTRIGINE
     Route: 048
  142. LAMICTAL [Suspect]
     Active Substance: LAMOTRIGINE
     Dosage: DOSE FORM: TABLET AND PATIENT ROA: ORAL
     Route: 048
  143. LAMICTAL [Suspect]
     Active Substance: LAMOTRIGINE
     Dosage: DOSE FORM: TABLET AND PATIENT ROA: ORAL
     Route: 048
  144. LAMICTAL [Suspect]
     Active Substance: LAMOTRIGINE
     Dosage: DOSE FORM: TABLET AND PATIENT ROA: UNKNOWN
  145. LAMICTAL [Suspect]
     Active Substance: LAMOTRIGINE
     Dosage: DOSE FORM: TABLET AND PATIENT ROA: ORAL
     Route: 048
  146. LAMICTAL [Suspect]
     Active Substance: LAMOTRIGINE
     Dosage: DOSE FORM: TABLET AND PATIENT ROA: ORAL
     Route: 048
  147. LAMOTRIGINE [Suspect]
     Active Substance: LAMOTRIGINE
     Indication: Product used for unknown indication
     Dosage: DOSE FORM: TABLET AND PATIENT ROA: UNKNOWN
  148. LAMOTRIGINE [Suspect]
     Active Substance: LAMOTRIGINE
     Dosage: DOSE FORM: TABLET AND PATIENT ROA: UNKNOWN
  149. LAMOTRIGINE [Suspect]
     Active Substance: LAMOTRIGINE
     Dosage: DOSE FORM: TABLET AND PATIENT ROA: ORAL
     Route: 048
  150. LAMOTRIGINE [Suspect]
     Active Substance: LAMOTRIGINE
     Dosage: DOSE FORM: TABLET AND PATIENT ROA: ORAL
     Route: 048
  151. LEVOMILNACIPRAN [Suspect]
     Active Substance: LEVOMILNACIPRAN
     Indication: Product used for unknown indication
  152. MAGNESIUM CARBONATE [Suspect]
     Active Substance: MAGNESIUM CARBONATE
     Indication: Product used for unknown indication
  153. MAGNESIUM CHLORIDE [Suspect]
     Active Substance: MAGNESIUM CHLORIDE
     Indication: Product used for unknown indication
  154. MAGNESIUM CHLORIDE [Suspect]
     Active Substance: MAGNESIUM CHLORIDE
     Indication: Product used for unknown indication
     Dosage: DOSE FORM AND PATIENT ROA: UNKNOWN
  155. METHOTREXATE [Suspect]
     Active Substance: METHOTREXATE
     Indication: Product used for unknown indication
  156. METHYLPREDNISOLONE [Suspect]
     Active Substance: METHYLPREDNISOLONE
     Indication: Product used for unknown indication
  157. MILNACIPRAN HYDROCHLORIDE [Suspect]
     Active Substance: MILNACIPRAN HYDROCHLORIDE
     Indication: Product used for unknown indication
  158. MILNACIPRAN HYDROCHLORIDE [Suspect]
     Active Substance: MILNACIPRAN HYDROCHLORIDE
     Dosage: DOSE FORM AND PATIENT ROA: UNKNOWN
  159. MYRBETRIQ [Suspect]
     Active Substance: MIRABEGRON
     Indication: Migraine
  160. MYRBETRIQ [Suspect]
     Active Substance: MIRABEGRON
     Route: 048
  161. MYRBETRIQ [Suspect]
     Active Substance: MIRABEGRON
     Dosage: DOSE FORM: TABLET (EXTENDED RELEASE) AND PATIENT ROA: UNKNOWN
  162. MYRBETRIQ [Suspect]
     Active Substance: MIRABEGRON
     Dosage: DOSE FORM: TABLET AND PATIENT ROA: ORAL
     Route: 048
  163. NAPROXEN [Suspect]
     Active Substance: NAPROXEN
     Indication: Product used for unknown indication
     Dosage: PATIENT ROA: UNKNOWN
  164. NAPROXEN [Suspect]
     Active Substance: NAPROXEN
     Indication: Product used for unknown indication
  165. NAPROXEN [Suspect]
     Active Substance: NAPROXEN
     Dosage: DOSE FORM: TABLET AND PATIENT ROA: UNKNOWN
  166. NAPROXEN [Suspect]
     Active Substance: NAPROXEN
  167. NAPROXEN [Suspect]
     Active Substance: NAPROXEN
     Dosage: DOSE FORM: TABLET AND PATIENT ROA: UNKNOWN
  168. NAPROXEN [Suspect]
     Active Substance: NAPROXEN
     Dosage: DOSE FORM: TABLET AND PATIENT ROA: UNKNOWN
  169. NAPROXEN [Suspect]
     Active Substance: NAPROXEN
     Dosage: DOSE FORM: TABLET AND PATIENT ROA: UNKNOWN
  170. NAPROXEN [Suspect]
     Active Substance: NAPROXEN
     Dosage: DOSE FORM: TABLET AND PATIENT ROA: ENDOCERVICAL
  171. NAPROXEN [Suspect]
     Active Substance: NAPROXEN
  172. NAPROXEN [Suspect]
     Active Substance: NAPROXEN
  173. NAPROXEN [Suspect]
     Active Substance: NAPROXEN
  174. NICOTINAMIDE [Suspect]
     Active Substance: NIACINAMIDE
     Indication: Product used for unknown indication
  175. ORENCIA [Suspect]
     Active Substance: ABATACEPT
     Indication: Product used for unknown indication
  176. OTEZLA [Suspect]
     Active Substance: APREMILAST
     Indication: Product used for unknown indication
     Dosage: PATIENT ROA: UNKNOWN
  177. PAROXETINE [Suspect]
     Active Substance: PAROXETINE
     Indication: Product used for unknown indication
  178. PAROXETINE HYDROCHLORIDE [Suspect]
     Active Substance: PAROXETINE HYDROCHLORIDE
     Indication: Product used for unknown indication
  179. PAROXETINE HYDROCHLORIDE [Suspect]
     Active Substance: PAROXETINE HYDROCHLORIDE
  180. CHOLECALCIFEROL [Suspect]
     Active Substance: CHOLECALCIFEROL
     Indication: Product used for unknown indication
  181. PHOSPHORUS [Suspect]
     Active Substance: PHOSPHORUS
     Indication: Product used for unknown indication
  182. PREDNICARBATE [Suspect]
     Active Substance: PREDNICARBATE
     Indication: Product used for unknown indication
  183. PSEUDOEPHEDRINE [Suspect]
     Active Substance: PSEUDOEPHEDRINE
     Indication: Product used for unknown indication
  184. PSEUDOEPHEDRINE [Suspect]
     Active Substance: PSEUDOEPHEDRINE
     Indication: Product used for unknown indication
  185. PSEUDOEPHEDRINE HYDROCHLORIDE [Suspect]
     Active Substance: PSEUDOEPHEDRINE HYDROCHLORIDE
     Indication: Product used for unknown indication
  186. PSEUDOEPHEDRINE HYDROCHLORIDE [Suspect]
     Active Substance: PSEUDOEPHEDRINE HYDROCHLORIDE
     Dosage: PATIENT ROA: UNKNOWN
  187. PSEUDOEPHEDRINE HYDROCHLORIDE [Suspect]
     Active Substance: PSEUDOEPHEDRINE HYDROCHLORIDE
     Dosage: PATIENT ROA: UNKNOWN
  188. PSEUDOEPHEDRINE HYDROCHLORIDE [Suspect]
     Active Substance: PSEUDOEPHEDRINE HYDROCHLORIDE
     Indication: Product used for unknown indication
  189. PSEUDOEPHEDRINE HYDROCHLORIDE [Suspect]
     Active Substance: PSEUDOEPHEDRINE HYDROCHLORIDE
  190. PYRIDOXINE HYDROCHLORIDE [Suspect]
     Active Substance: PYRIDOXINE HYDROCHLORIDE
     Indication: Product used for unknown indication
  191. RAMIPRIL [Suspect]
     Active Substance: RAMIPRIL
     Indication: Product used for unknown indication
  192. RANITIDINE HYDROCHLORIDE [Suspect]
     Active Substance: RANITIDINE HYDROCHLORIDE
     Indication: Product used for unknown indication
  193. CETIRIZINE HYDROCHLORIDE [Suspect]
     Active Substance: CETIRIZINE HYDROCHLORIDE
     Indication: Product used for unknown indication
  194. CETIRIZINE HYDROCHLORIDE\PSEUDOEPHEDRINE HYDROCHLORIDE [Suspect]
     Active Substance: CETIRIZINE HYDROCHLORIDE\PSEUDOEPHEDRINE HYDROCHLORIDE
     Indication: Product used for unknown indication
     Dosage: DOSE FORM: TABLET (EXTENDED-RELEASE) AND PATIENT ROA: UNKNOWN
  195. CETIRIZINE HYDROCHLORIDE\PSEUDOEPHEDRINE HYDROCHLORIDE [Suspect]
     Active Substance: CETIRIZINE HYDROCHLORIDE\PSEUDOEPHEDRINE HYDROCHLORIDE
     Route: 048
  196. RITUXIMAB [Suspect]
     Active Substance: RITUXIMAB
     Indication: Rheumatoid arthritis
  197. RITUXIMAB [Suspect]
     Active Substance: RITUXIMAB
  198. ERGOCALCIFEROL [Suspect]
     Active Substance: ERGOCALCIFEROL
     Indication: Product used for unknown indication
  199. LEFLUNOMIDE [Suspect]
     Active Substance: LEFLUNOMIDE
     Indication: Product used for unknown indication
  200. PANTOPRAZOLE SODIUM [Suspect]
     Active Substance: PANTOPRAZOLE SODIUM
     Indication: Product used for unknown indication
  201. PANTOPRAZOLE SODIUM [Suspect]
     Active Substance: PANTOPRAZOLE SODIUM
  202. PANTOPRAZOLE SODIUM [Suspect]
     Active Substance: PANTOPRAZOLE SODIUM
     Dosage: DOSE FORM: TABLET AND PATIENT ROA: UNKNOWN
  203. PANTOPRAZOLE SODIUM [Suspect]
     Active Substance: PANTOPRAZOLE SODIUM
  204. PANTOPRAZOLE SODIUM [Suspect]
     Active Substance: PANTOPRAZOLE SODIUM
     Dosage: DOSE FORM: TABLET AND PATIENT ROA: UNKNOWN
  205. PANTOPRAZOLE SODIUM [Suspect]
     Active Substance: PANTOPRAZOLE SODIUM
  206. PANTOPRAZOLE SODIUM [Suspect]
     Active Substance: PANTOPRAZOLE SODIUM
     Dosage: DOSE FORM: TABLET AND PATIENT ROA: UNKNOWN
  207. PANTOPRAZOLE SODIUM [Suspect]
     Active Substance: PANTOPRAZOLE SODIUM
  208. PANTOPRAZOLE SODIUM [Suspect]
     Active Substance: PANTOPRAZOLE SODIUM
  209. PANTOPRAZOLE SODIUM [Suspect]
     Active Substance: PANTOPRAZOLE SODIUM
     Dosage: DOSE FORM: TABLET AND PATIENT ROA: UNKNOWN
  210. PANTOPRAZOLE SODIUM [Suspect]
     Active Substance: PANTOPRAZOLE SODIUM
     Dosage: DOSE FORM: TABLET AND PATIENT ROA: UNKNOWN
  211. PANTOPRAZOLE SODIUM [Suspect]
     Active Substance: PANTOPRAZOLE SODIUM
     Dosage: DOSE FORM: TABLET AND PATIENT ROA: UNKNOWN
  212. PANTOPRAZOLE SODIUM [Suspect]
     Active Substance: PANTOPRAZOLE SODIUM
     Route: 048
  213. PANTOPRAZOLE SODIUM [Suspect]
     Active Substance: PANTOPRAZOLE SODIUM
     Route: 048
  214. PANTOPRAZOLE SODIUM [Suspect]
     Active Substance: PANTOPRAZOLE SODIUM
     Dosage: DOSE FORM: TABLET AND PATIENT ROA: UNKNOWN
  215. PANTOPRAZOLE SODIUM [Suspect]
     Active Substance: PANTOPRAZOLE SODIUM
     Route: 048
  216. PANTOPRAZOLE SODIUM [Suspect]
     Active Substance: PANTOPRAZOLE SODIUM
  217. PANTOPRAZOLE SODIUM [Suspect]
     Active Substance: PANTOPRAZOLE SODIUM
     Indication: Product used for unknown indication
  218. PANTOPRAZOLE SODIUM [Suspect]
     Active Substance: PANTOPRAZOLE SODIUM
  219. PANTOPRAZOLE SODIUM [Suspect]
     Active Substance: PANTOPRAZOLE SODIUM
     Route: 048
  220. PANTOPRAZOLE SODIUM [Suspect]
     Active Substance: PANTOPRAZOLE SODIUM
     Dosage: DOSE FORM: GASTRO-RESISTANT TABLET AND PATIENT ROA: UNKNOWN
  221. PANTOPRAZOLE SODIUM [Suspect]
     Active Substance: PANTOPRAZOLE SODIUM
     Dosage: DOSE FORM: GASTRO-RESISTANT TABLET AND PATIENT ROA: UNKNOWN
  222. PANTOPRAZOLE SODIUM [Suspect]
     Active Substance: PANTOPRAZOLE SODIUM
     Dosage: DOSE FORM: GASTRO-RESISTANT TABLET AND PATIENT ROA: UNKNOWN
  223. PANTOPRAZOLE SODIUM [Suspect]
     Active Substance: PANTOPRAZOLE SODIUM
     Dosage: DOSE FORM: GASTRO-RESISTANT TABLET AND PATIENT ROA: UNKNOWN
  224. PANTOPRAZOLE SODIUM [Suspect]
     Active Substance: PANTOPRAZOLE SODIUM
  225. PANTOPRAZOLE SODIUM [Suspect]
     Active Substance: PANTOPRAZOLE SODIUM
  226. PANTOPRAZOLE SODIUM [Suspect]
     Active Substance: PANTOPRAZOLE SODIUM
     Dosage: DOSE FORM: GASTRO-RESISTANT TABLET AND PATIENT ROA: UNKNOWN
  227. PANTOPRAZOLE SODIUM [Suspect]
     Active Substance: PANTOPRAZOLE SODIUM
     Dosage: DOSE FORM: GASTRO-RESISTANT TABLET AND PATIENT ROA: UNKNOWN
  228. PANTOPRAZOLE SODIUM [Suspect]
     Active Substance: PANTOPRAZOLE SODIUM
     Dosage: DOSE FORM: GASTRO-RESISTANT TABLET AND PATIENT ROA: UNKNOWN
  229. PANTOPRAZOLE SODIUM [Suspect]
     Active Substance: PANTOPRAZOLE SODIUM
     Dosage: DOSE FORM: GASTRO-RESISTANT TABLET AND PATIENT ROA: UNKNOWN
  230. PANTOPRAZOLE SODIUM [Suspect]
     Active Substance: PANTOPRAZOLE SODIUM
     Dosage: DOSE FORM: GASTRO-RESISTANT TABLET AND PATIENT ROA: UNKNOWN
  231. PANTOPRAZOLE SODIUM [Suspect]
     Active Substance: PANTOPRAZOLE SODIUM
  232. PANTOPRAZOLE SODIUM [Suspect]
     Active Substance: PANTOPRAZOLE SODIUM
     Dosage: DOSE FORM: GASTRO-RESISTANT TABLET AND PATIENT ROA: UNKNOWN
  233. PANTOPRAZOLE SODIUM [Suspect]
     Active Substance: PANTOPRAZOLE SODIUM
     Dosage: DOSE FORM: GASTRO-RESISTANT TABLET AND PATIENT ROA: UNKNOWN
  234. PANTOPRAZOLE SODIUM [Suspect]
     Active Substance: PANTOPRAZOLE SODIUM
  235. PANTOPRAZOLE SODIUM [Suspect]
     Active Substance: PANTOPRAZOLE SODIUM
     Dosage: DOSE FORM: GASTRO-RESISTANT TABLET AND PATIENT ROA: UNKNOWN
  236. TOPIRAMATE [Suspect]
     Active Substance: TOPIRAMATE
     Indication: Migraine
     Dosage: DOSE FORM AND PATIENT ROA: UNKNOWN
  237. TOPIRAMATE [Suspect]
     Active Substance: TOPIRAMATE
     Dosage: DOSE FORM AND PATIENT ROA: UNKNOWN
  238. TOPIRAMATE [Suspect]
     Active Substance: TOPIRAMATE
     Dosage: DOSE FORM AND PATIENT ROA: UNKNOWN
  239. TOPIRAMATE [Suspect]
     Active Substance: TOPIRAMATE
     Dosage: DOSE FORM AND PATIENT ROA: UNKNOWN
  240. TOPIRAMATE [Suspect]
     Active Substance: TOPIRAMATE
     Dosage: DOSE FORM AND PATIENT ROA: UNKNOWN
  241. TOPIRAMATE [Suspect]
     Active Substance: TOPIRAMATE
  242. TOPIRAMATE [Suspect]
     Active Substance: TOPIRAMATE
     Indication: Migraine
     Dosage: DOSE FORM: TABLET AND PATIENT ROA: UNKNOWN
  243. STRATTERA [Suspect]
     Active Substance: ATOMOXETINE HYDROCHLORIDE
     Indication: Migraine
  244. STRATTERA [Suspect]
     Active Substance: ATOMOXETINE HYDROCHLORIDE
  245. STRATTERA [Suspect]
     Active Substance: ATOMOXETINE HYDROCHLORIDE
  246. STRATTERA [Suspect]
     Active Substance: ATOMOXETINE HYDROCHLORIDE
  247. SULFASALAZINE [Suspect]
     Active Substance: SULFASALAZINE
     Indication: Rheumatoid arthritis
     Dosage: PATIENT ROA: ORAL
     Route: 048
  248. SULFASALAZINE [Suspect]
     Active Substance: SULFASALAZINE
     Dosage: PATIENT ROA: ORAL
     Route: 048
  249. SULFASALAZINE [Suspect]
     Active Substance: SULFASALAZINE
     Dosage: PATIENT ROA: UNKNOWN
  250. SULFASALAZINE [Suspect]
     Active Substance: SULFASALAZINE
     Route: 048
  251. SULFASALAZINE [Suspect]
     Active Substance: SULFASALAZINE
     Dosage: PATIENT ROA: ORAL
     Route: 048
  252. SULFASALAZINE [Suspect]
     Active Substance: SULFASALAZINE
     Route: 048
  253. SULFASALAZINE [Suspect]
     Active Substance: SULFASALAZINE
     Route: 048
  254. THIAMINE [Suspect]
     Active Substance: THIAMINE
     Indication: Product used for unknown indication
  255. THIAMINE HYDROCHLORIDE [Suspect]
     Active Substance: THIAMINE HYDROCHLORIDE
     Indication: Product used for unknown indication
  256. TOPICORT [Suspect]
     Active Substance: DESOXIMETASONE
     Indication: Product used for unknown indication
     Dosage: PATIENT ROA: UNKNOWN
  257. TOPICORT [Suspect]
     Active Substance: DESOXIMETASONE
     Dosage: PATIENT ROA: UNKNOWN
  258. TOPICORT [Suspect]
     Active Substance: DESOXIMETASONE
     Dosage: PATIENT ROA: UNKNOWN
  259. TOPICORT [Suspect]
     Active Substance: DESOXIMETASONE
  260. TOPICORT [Suspect]
     Active Substance: DESOXIMETASONE
     Dosage: PATIENT ROA: UNKNOWN
  261. TOPICORT [Suspect]
     Active Substance: DESOXIMETASONE
     Dosage: PATIENT ROA: UNKNOWN
  262. TOPICORT [Suspect]
     Active Substance: DESOXIMETASONE
     Dosage: PATIENT ROA: UNKNOWN
  263. TOPICORT [Suspect]
     Active Substance: DESOXIMETASONE
     Dosage: PATIENT ROA: UNKNOWN
  264. TOPICORT [Suspect]
     Active Substance: DESOXIMETASONE
  265. TOPIRAMATE [Suspect]
     Active Substance: TOPIRAMATE
     Indication: Product used for unknown indication
  266. TOPIRAMATE [Suspect]
     Active Substance: TOPIRAMATE
  267. TOPIRAMATE [Suspect]
     Active Substance: TOPIRAMATE
     Dosage: PATIENT ROA: UNKNOWN
  268. TRAZODONE [Suspect]
     Active Substance: TRAZODONE HYDROCHLORIDE
     Indication: Product used for unknown indication
     Dosage: DOSE FORM: TABLET AND PATIENT ROA: UNKNOWN
  269. TRAZODONE [Suspect]
     Active Substance: TRAZODONE HYDROCHLORIDE
     Dosage: DOSE FORM: TABLET AND PATIENT ROA: UNKNOWN
  270. TRAZODONE [Suspect]
     Active Substance: TRAZODONE HYDROCHLORIDE
     Dosage: DOSE FORM: TABLET AND PATIENT ROA: UNKNOWN
  271. TRAZODONE [Suspect]
     Active Substance: TRAZODONE HYDROCHLORIDE
     Dosage: DOSE FORM: TABLET AND PATIENT ROA: UNKNOWN
  272. TRAZODONE [Suspect]
     Active Substance: TRAZODONE HYDROCHLORIDE
     Dosage: DOSE FORM: TABLET AND PATIENT ROA: UNKNOWN
  273. TRAZODONE HYDROCHLORIDE [Suspect]
     Active Substance: TRAZODONE HYDROCHLORIDE
     Indication: Product used for unknown indication
     Dosage: DOSE FORM: TABLET AND PATIENT ROA: UNKNOWN
  274. TRAZODONE HYDROCHLORIDE [Suspect]
     Active Substance: TRAZODONE HYDROCHLORIDE
  275. TRAZODONE HYDROCHLORIDE [Suspect]
     Active Substance: TRAZODONE HYDROCHLORIDE
     Dosage: DOSE FORM: TABLET AND PATIENT ROA: UNKNOWN
  276. TRAZODONE HYDROCHLORIDE [Suspect]
     Active Substance: TRAZODONE HYDROCHLORIDE
     Dosage: DOSE FORM: TABLET AND PATIENT ROA: UNKNOWN
  277. TRETINOIN [Suspect]
     Active Substance: TRETINOIN
     Indication: Product used for unknown indication
  278. TRETINOIN [Suspect]
     Active Substance: TRETINOIN

REACTIONS (27)
  - Epilepsy [Fatal]
  - Off label use [Fatal]
  - Abdominal pain upper [Fatal]
  - Hypoaesthesia [Fatal]
  - Migraine [Fatal]
  - Sleep disorder due to a general medical condition [Fatal]
  - Synovitis [Fatal]
  - Drug intolerance [Fatal]
  - Vomiting [Fatal]
  - Product use in unapproved indication [Fatal]
  - Rash [Fatal]
  - Pain [Fatal]
  - Respiratory disorder [Fatal]
  - Swollen joint count increased [Fatal]
  - Memory impairment [Fatal]
  - Rheumatoid arthritis [Fatal]
  - Paraesthesia [Fatal]
  - Rheumatoid factor positive [Fatal]
  - Blepharospasm [Fatal]
  - Gastrooesophageal reflux disease [Fatal]
  - Taste disorder [Fatal]
  - Sleep disorder [Fatal]
  - Red blood cell sedimentation rate increased [Fatal]
  - Drug ineffective [Fatal]
  - Rheumatic fever [Fatal]
  - Swelling [Fatal]
  - Stomatitis [Fatal]
